FAERS Safety Report 6577562-1 (Version None)
Quarter: 2010Q1

REPORT INFORMATION
  Report Type: 
  Country: None (occurrence: None)
  Receive Date: 20100211
  Receipt Date: 20100203
  Transmission Date: 20100710
  Serious: Yes (Hospitalization)
  Sender: FDA-Public Use
  Company Number: GB-ASTRAZENECA-2009SE27652

PATIENT
  Sex: Male

DRUGS (5)
  1. QUETIAPINE [Suspect]
     Indication: SCHIZOPHRENIA
     Route: 048
     Dates: start: 20090401
  2. CLOZARIL [Suspect]
     Indication: SCHIZOPHRENIA
     Route: 048
     Dates: start: 20080704
  3. CLOZARIL [Suspect]
     Route: 048
     Dates: start: 20090401
  4. CITALOPRAM [Suspect]
     Indication: DEPRESSION
     Route: 048
     Dates: start: 20090401
  5. PIRENZEPINE [Concomitant]
     Route: 048
     Dates: start: 20090401

REACTIONS (2)
  - OVERDOSE [None]
  - SOMNOLENCE [None]
